FAERS Safety Report 14037284 (Version 1)
Quarter: 2017Q4

REPORT INFORMATION
  Report Type: Report from Study
  Country: AU (occurrence: AU)
  Receive Date: 20171004
  Receipt Date: 20171004
  Transmission Date: 20180321
  Serious: Yes (Hospitalization)
  Sender: FDA-Public Use
  Company Number: AU-BIOGEN-2017BI00462980

PATIENT
  Age: 69 Year
  Sex: Male

DRUGS (5)
  1. CORTISONE CREAM [Concomitant]
     Indication: PAIN IN EXTREMITY
     Route: 065
  2. CORTISONE CREAM [Concomitant]
     Indication: PERIPHERAL COLDNESS
  3. ZINBRYTA [Suspect]
     Active Substance: DACLIZUMAB
     Indication: RELAPSING-REMITTING MULTIPLE SCLEROSIS
     Route: 058
     Dates: start: 20170829
  4. CORTISONE CREAM [Concomitant]
     Indication: SKIN FISSURES
  5. CORTISONE CREAM [Concomitant]
     Indication: SKIN DISCOLOURATION

REACTIONS (4)
  - Injury [Not Recovered/Not Resolved]
  - Back pain [Not Recovered/Not Resolved]
  - Arthralgia [Not Recovered/Not Resolved]
  - Musculoskeletal disorder [Not Recovered/Not Resolved]

NARRATIVE: CASE EVENT DATE: 20170918
